FAERS Safety Report 18702116 (Version 1)
Quarter: 2021Q1

REPORT INFORMATION
  Report Type: Spontaneous
  Country: CA (occurrence: CA)
  Receive Date: 20210105
  Receipt Date: 20210105
  Transmission Date: 20210419
  Serious: Yes (Hospitalization, Other)
  Sender: FDA-Public Use
  Company Number: CA-VISTAPHARM, INC.-VER202012-002252

PATIENT
  Age: 64 Year
  Sex: Female

DRUGS (1)
  1. HYDROCODONE AND ACETAMINOPHEN [Suspect]
     Active Substance: ACETAMINOPHEN\HYDROCODONE
     Indication: PRODUCT USED FOR UNKNOWN INDICATION
     Dosage: 150 TABLETS (75 G)
     Route: 048

REACTIONS (7)
  - Acute hepatic failure [Unknown]
  - Confusional state [Unknown]
  - Encephalopathy [Unknown]
  - Oliguria [Unknown]
  - Haemodynamic instability [Unknown]
  - Intentional overdose [Unknown]
  - Metabolic acidosis [Unknown]
